FAERS Safety Report 5317284-8 (Version None)
Quarter: 2007Q2

REPORT INFORMATION
  Report Type: 
  Country: None (occurrence: None)
  Receive Date: 20070504
  Receipt Date: 20070423
  Transmission Date: 20071010
  Serious: Yes (Death)
  Sender: FDA-Public Use
  Company Number: DK-PFIZER INC-2007033392

PATIENT
  Sex: Female
  Weight: 45 kg

DRUGS (1)
  1. ZIPRASIDONE (CAPS) [Suspect]
     Route: 048

REACTIONS (1)
  - DEATH [None]
